FAERS Safety Report 23848375 (Version 1)
Quarter: 2024Q2

REPORT INFORMATION
  Report Type: Spontaneous
  Country: US (occurrence: None)
  Receive Date: 20240510
  Receipt Date: 20240510
  Transmission Date: 20240715
  Serious: No
  Sender: FDA-Public Use
  Company Number: None

PATIENT
  Age: 74 Year

DRUGS (1)
  1. TAVNEOS [Suspect]
     Active Substance: AVACOPAN
     Route: 048

REACTIONS (3)
  - Peripheral swelling [None]
  - Pain [None]
  - Therapy interrupted [None]
